FAERS Safety Report 25084973 (Version 1)
Quarter: 2025Q1

REPORT INFORMATION
  Report Type: Report from Study
  Country: US (occurrence: US)
  Receive Date: 20250317
  Receipt Date: 20250317
  Transmission Date: 20250408
  Serious: No
  Sender: ACADIA PHARMACEUTICALS
  Company Number: US-ACADIA PHARMACEUTICALS INC.-ACA-2025-PIM-002686

PATIENT
  Sex: Male

DRUGS (1)
  1. NUPLAZID [Suspect]
     Active Substance: PIMAVANSERIN TARTRATE
     Indication: Major depression
     Dosage: 10 MILLIGRAM, QD
     Route: 048

REACTIONS (3)
  - Anxiety [Unknown]
  - Product use in unapproved indication [Not Recovered/Not Resolved]
  - Product prescribing issue [Not Recovered/Not Resolved]
